FAERS Safety Report 13254268 (Version 4)
Quarter: 2017Q3

REPORT INFORMATION
  Report Type: Report from Study
  Country: US (occurrence: US)
  Receive Date: 20170221
  Receipt Date: 20170823
  Transmission Date: 20171127
  Serious: Yes (Hospitalization, Other)
  Sender: FDA-Public Use
  Company Number: US-ROCHE-1888176

PATIENT
  Sex: Male

DRUGS (7)
  1. XOLAIR [Suspect]
     Active Substance: OMALIZUMAB
     Indication: ASTHMA
     Route: 058
     Dates: start: 20060101
  2. ALBUTEROL. [Concomitant]
     Active Substance: ALBUTEROL
  3. DUONEB [Concomitant]
     Active Substance: ALBUTEROL SULFATE\IPRATROPIUM BROMIDE
  4. BROVANA [Concomitant]
     Active Substance: ARFORMOTEROL TARTRATE
  5. SPIRIVA [Concomitant]
     Active Substance: TIOTROPIUM BROMIDE MONOHYDRATE
  6. BUDESONIDE. [Concomitant]
     Active Substance: BUDESONIDE
  7. PREDNISONE. [Concomitant]
     Active Substance: PREDNISONE

REACTIONS (14)
  - Malaise [Unknown]
  - Ocular hyperaemia [Unknown]
  - Bronchitis [Unknown]
  - Arthropathy [Unknown]
  - Pyrexia [Unknown]
  - Nasopharyngitis [Recovering/Resolving]
  - Sinus disorder [Unknown]
  - Aphasia [Unknown]
  - Eye irritation [Unknown]
  - Atypical pneumonia [Unknown]
  - Pneumonia [Unknown]
  - Sinusitis [Unknown]
  - Cough [Unknown]
  - Influenza [Unknown]

NARRATIVE: CASE EVENT DATE: 2007
